FAERS Safety Report 10005764 (Version 1)
Quarter: 2014Q1

REPORT INFORMATION
  Report Type: Spontaneous
  Country: US (occurrence: US)
  Receive Date: 20140313
  Receipt Date: 20140313
  Transmission Date: 20141002
  Serious: No
  Sender: FDA-Public Use
  Company Number: US-BIOGENIDEC-2014BI021420

PATIENT
  Age: 38 Year
  Sex: Female

DRUGS (10)
  1. TECFIDERA [Suspect]
     Indication: PRODUCT USED FOR UNKNOWN INDICATION
     Dates: start: 2014
  2. AVONEX [Concomitant]
     Dates: start: 201210, end: 2014
  3. BACLOFEN [Concomitant]
     Dates: start: 201312
  4. NAPROXEN [Concomitant]
     Dates: start: 2012
  5. SYNTHROID [Concomitant]
  6. ASCORBIC ACID [Concomitant]
  7. ERGOCALCIFEROL [Concomitant]
  8. NICOTINAMIDE [Concomitant]
  9. RETINOL [Concomitant]
  10. RIBOFLAVIN [Concomitant]

REACTIONS (2)
  - Dizziness [Not Recovered/Not Resolved]
  - Fatigue [Not Recovered/Not Resolved]
